FAERS Safety Report 7077721-8 (Version None)
Quarter: 2010Q4

REPORT INFORMATION
  Report Type: 
  Country: None (occurrence: None)
  Receive Date: 20101021
  Receipt Date: 20101007
  Transmission Date: 20110411
  Serious: Yes (Hospitalization)
  Sender: FDA-Public Use
  Company Number: 014953

PATIENT
  Sex: Male
  Weight: 87 kg

DRUGS (11)
  1. LEVETIRACETAM [Suspect]
     Indication: PARTIAL SEIZURES
     Dosage: (500 MG BID ORAL), (1000 MG BID ORAL), (150 MG BID ORAL)
     Route: 048
     Dates: start: 20070216, end: 20070309
  2. LEVETIRACETAM [Suspect]
     Indication: PARTIAL SEIZURES
     Dosage: (500 MG BID ORAL), (1000 MG BID ORAL), (150 MG BID ORAL)
     Route: 048
     Dates: start: 20070309, end: 20070413
  3. LEVETIRACETAM [Suspect]
     Indication: PARTIAL SEIZURES
     Dosage: (500 MG BID ORAL), (1000 MG BID ORAL), (150 MG BID ORAL)
     Route: 048
     Dates: start: 20070413
  4. PHENYTOIN [Suspect]
     Indication: EPILEPSY
     Dosage: (2.4 G QD ORAL)
     Route: 048
     Dates: end: 20100520
  5. ALEVIATIN /00017401/ (ALEVIATIN) [Suspect]
     Indication: EPILEPSY
     Dosage: (200 MG QD ORAL)
     Route: 048
     Dates: start: 20100527, end: 20100610
  6. LAMOTRIGINE [Concomitant]
  7. VALPROATE SODIUM [Concomitant]
  8. CANDESARTAN CILEXETIL [Concomitant]
  9. IMIDAPRIL HYDROCHLORIDE [Concomitant]
  10. HALOPERIDOL [Concomitant]
  11. LIVER HYDROLYSATE [Concomitant]

REACTIONS (7)
  - CONVULSION [None]
  - DRUG TOXICITY [None]
  - FEELING ABNORMAL [None]
  - GAIT DISTURBANCE [None]
  - HEAD TITUBATION [None]
  - SOMNOLENCE [None]
  - VOMITING [None]
